FAERS Safety Report 7356808-6 (Version None)
Quarter: 2011Q1

REPORT INFORMATION
  Report Type: 
  Country: None (occurrence: None)
  Receive Date: 20110316
  Receipt Date: 20110303
  Transmission Date: 20110831
  Serious: Yes (Other)
  Sender: FDA-Public Use
  Company Number: GB-MYLANLABS-2011S1004513

PATIENT
  Age: 83 Year
  Sex: Female

DRUGS (3)
  1. AMPICILLIN SODIUM/SULBACTAM SODIUM [Concomitant]
     Indication: PNEUMONIA
     Route: 065
  2. CLARITHROMYCIN [Suspect]
     Indication: PNEUMONIA
     Route: 065
  3. SIMVASTATIN [Interacting]
     Indication: HYPERLIPIDAEMIA
     Route: 065

REACTIONS (3)
  - DRUG INTERACTION [None]
  - MYOPATHY [None]
  - HYPERCALCAEMIA [None]
